FAERS Safety Report 7257635-0 (Version None)
Quarter: 2011Q1

REPORT INFORMATION
  Report Type: 
  Country: None (occurrence: None)
  Receive Date: 20110129
  Receipt Date: 20100503
  Transmission Date: 20110831
  Serious: Yes (Other)
  Sender: FDA-Public Use
  Company Number: US-ABBOTT-10P-163-0642107-00

PATIENT
  Sex: Female
  Weight: 70.37 kg

DRUGS (2)
  1. VYTORIN [Concomitant]
     Indication: RHEUMATOID ARTHRITIS
  2. HUMIRA [Suspect]
     Indication: RHEUMATOID ARTHRITIS
     Route: 058
     Dates: start: 20040101, end: 20100101

REACTIONS (3)
  - CATARACT [None]
  - GAIT DISTURBANCE [None]
  - RHEUMATOID ARTHRITIS [None]
